FAERS Safety Report 25654763 (Version 1)
Quarter: 2025Q3

REPORT INFORMATION
  Report Type: Spontaneous
  Country: SG (occurrence: SG)
  Receive Date: 20250807
  Receipt Date: 20250807
  Transmission Date: 20251021
  Serious: Yes (Other)
  Sender: RANBAXY
  Company Number: SG-SUN PHARMACEUTICAL INDUSTRIES INC-2025R1-518619

PATIENT
  Age: 68 Year
  Sex: Male

DRUGS (3)
  1. AMOXICILLIN\CLAVULANIC ACID [Suspect]
     Active Substance: AMOXICILLIN\CLAVULANIC ACID
     Indication: Pneumonia
     Route: 065
  2. MORPHINE [Suspect]
     Active Substance: MORPHINE
     Indication: Prophylaxis
     Route: 065
  3. CODEINE PHOSPHATE\PROMETHAZINE HYDROCHLORIDE [Suspect]
     Active Substance: CODEINE PHOSPHATE\PROMETHAZINE HYDROCHLORIDE
     Indication: Prophylaxis
     Dosage: 10 MILLILITER, TID
     Route: 048

REACTIONS (1)
  - Therapy non-responder [Unknown]
